FAERS Safety Report 14820483 (Version 3)
Quarter: 2018Q3

REPORT INFORMATION
  Report Type: Spontaneous
  Country: US (occurrence: US)
  Receive Date: 20180427
  Receipt Date: 20180927
  Transmission Date: 20181010
  Serious: Yes (Other)
  Sender: FDA-Public Use
  Company Number: US-AMGEN-USASP2018056262

PATIENT
  Age: 73 Year
  Sex: Female
  Weight: 98.59 kg

DRUGS (19)
  1. HYDROCODONE/ACETAMINOPHEN [Concomitant]
     Active Substance: ACETAMINOPHEN\HYDROCODONE
  2. XGEVA [Suspect]
     Active Substance: DENOSUMAB
     Indication: METASTASES TO BONE
     Dosage: 120 MG, Q4WK
     Route: 058
     Dates: start: 20160614, end: 20170724
  3. LAMICTAL [Concomitant]
     Active Substance: LAMOTRIGINE
  4. ASPIRIN. [Concomitant]
     Active Substance: ASPIRIN
  5. CALTRATE 600+D [Concomitant]
  6. CEFADROXIL. [Concomitant]
     Active Substance: CEFADROXIL
  7. LEVOTHYROXINE. [Concomitant]
     Active Substance: LEVOTHYROXINE
  8. MUCINEX [Concomitant]
     Active Substance: GUAIFENESIN
  9. ALPRAZOLAM. [Concomitant]
     Active Substance: ALPRAZOLAM
  10. EXEMESTANE. [Concomitant]
     Active Substance: EXEMESTANE
  11. VITAMINS [Concomitant]
     Active Substance: VITAMINS
  12. XGEVA [Suspect]
     Active Substance: DENOSUMAB
     Indication: BREAST CANCER
     Dosage: 120 MG, Q3MO
     Route: 058
     Dates: start: 20170724, end: 20171113
  13. ESCITALOPRAM [Concomitant]
     Active Substance: ESCITALOPRAM OXALATE
  14. ELIQUIS [Concomitant]
     Active Substance: APIXABAN
  15. VITAMIN C [Concomitant]
     Active Substance: ASCORBIC ACID
  16. IBRANCE [Concomitant]
     Active Substance: PALBOCICLIB
  17. MORPHINE SULFATE. [Concomitant]
     Active Substance: MORPHINE SULFATE
  18. LITHIUM. [Concomitant]
     Active Substance: LITHIUM
  19. POTASSIUM ACETATE. [Concomitant]
     Active Substance: POTASSIUM ACETATE

REACTIONS (1)
  - Osteonecrosis of jaw [Recovered/Resolved]

NARRATIVE: CASE EVENT DATE: 20180305
